FAERS Safety Report 9202671 (Version 1)
Quarter: 2013Q2

REPORT INFORMATION
  Report Type: Spontaneous
  Country: US (occurrence: US)
  Receive Date: 20130401
  Receipt Date: 20130401
  Transmission Date: 20140414
  Serious: No
  Sender: FDA-Public Use
  Company Number: US-PFIZER INC-2013102439

PATIENT
  Age: 46 Year
  Sex: Female
  Weight: 77.1 kg

DRUGS (3)
  1. ZOLOFT [Suspect]
     Indication: DEPRESSION
     Dosage: 125MG BY TAKING 100MG ORAL TABLET IN THE MORNING AND 25MG ORAL TABLET AT NIGHT
     Route: 048
  2. LOPID [Suspect]
     Dosage: 600 MG, 2X/DAY
     Route: 048
  3. LISINOPRIL [Concomitant]
     Dosage: 20 MG, 1X/DAY

REACTIONS (3)
  - Ear pain [Unknown]
  - Confusional state [Unknown]
  - Memory impairment [Unknown]
